FAERS Safety Report 11432556 (Version 2)
Quarter: 2015Q4

REPORT INFORMATION
  Report Type: Spontaneous
  Country: US (occurrence: US)
  Receive Date: 20150828
  Receipt Date: 20151023
  Transmission Date: 20160304
  Serious: Yes (Other)
  Sender: FDA-Public Use
  Company Number: US-PFIZER INC-2015284896

PATIENT
  Age: 73 Year
  Sex: Female
  Weight: 50 kg

DRUGS (8)
  1. LEXAPRO [Concomitant]
     Active Substance: ESCITALOPRAM OXALATE
     Indication: ANXIETY
     Dosage: 10 MG, 1X/DAY
  2. ATENOLOL. [Concomitant]
     Active Substance: ATENOLOL
     Indication: PULSE ABNORMAL
     Dosage: 37.5 MG, DAILY 25MG IN THE DAY AND 12.5MG AT NIGHT
     Route: 048
  3. ADVIL [Suspect]
     Active Substance: IBUPROFEN
     Indication: PAIN
  4. XANAX [Concomitant]
     Active Substance: ALPRAZOLAM
     Indication: ANXIETY
     Dosage: 0.5 MG, 4X/DAY
  5. PREVACID [Concomitant]
     Active Substance: LANSOPRAZOLE
     Indication: ROUTINE HEALTH MAINTENANCE
     Dosage: 15 MG, 1X/DAY, IN THE MORNING
     Route: 048
  6. ADVIL [Suspect]
     Active Substance: IBUPROFEN
     Indication: SCIATICA
     Dosage: 200 MG, AS NEEDED
     Route: 048
     Dates: end: 20150822
  7. ATENOLOL. [Concomitant]
     Active Substance: ATENOLOL
     Indication: HYPERTENSION
     Dosage: 25 MG, 1X/DAY
  8. MULTIVITAMINS, OTHER COMBINATIONS [Concomitant]
     Dosage: 600 MG, 1X/DAY
     Route: 048

REACTIONS (6)
  - Dysphagia [Not Recovered/Not Resolved]
  - Burning sensation [Recovered/Resolved]
  - Pain [Recovered/Resolved]
  - Feeling abnormal [Recovered/Resolved]
  - Oropharyngeal pain [Not Recovered/Not Resolved]
  - Laryngeal oedema [Recovered/Resolved]
